FAERS Safety Report 8799161 (Version 2)
Quarter: 2012Q4

REPORT INFORMATION
  Report Type: 
  Country: US (occurrence: US)
  Receive Date: 20120920
  Receipt Date: 20121016
  Transmission Date: 20130627
  Serious: Yes (Death, Life-Threatening, Hospitalization)
  Sender: FDA-Public Use
  Company Number: US-US-EMD SERONO, INC.-7162157

PATIENT
  Sex: Male

DRUGS (1)
  1. REBIF [Suspect]
     Indication: MULTIPLE SCLEROSIS
     Route: 058
     Dates: start: 20100408, end: 201208

REACTIONS (10)
  - Cardiac arrest [Fatal]
  - Respiratory failure [Fatal]
  - Klebsiella sepsis [Fatal]
  - Hypoxic-ischaemic encephalopathy [Fatal]
  - Multiple sclerosis [Fatal]
  - Chronic myelomonocytic leukaemia [Fatal]
  - Pneumonia [Not Recovered/Not Resolved]
  - Pleural effusion [Not Recovered/Not Resolved]
  - Urinary tract infection [Not Recovered/Not Resolved]
  - Colectomy [Not Recovered/Not Resolved]
